FAERS Safety Report 24314337 (Version 2)
Quarter: 2024Q4

REPORT INFORMATION
  Report Type: Report from Study
  Country: US (occurrence: US)
  Receive Date: 20240912
  Receipt Date: 20241023
  Transmission Date: 20250114
  Serious: Yes (Death, Other)
  Sender: JAZZ
  Company Number: US-JAZZ PHARMACEUTICALS-2024-US-014837

PATIENT
  Sex: Female

DRUGS (6)
  1. EPIDIOLEX [Suspect]
     Active Substance: CANNABIDIOL
     Indication: Lennox-Gastaut syndrome
     Dosage: 2.5 MILLILITER, BID
     Route: 048
     Dates: start: 202005
  2. EPIDIOLEX [Suspect]
     Active Substance: CANNABIDIOL
     Indication: Vena cava embolism
  3. EPIDIOLEX [Suspect]
     Active Substance: CANNABIDIOL
     Indication: Epilepsy
  4. EPIDIOLEX [Suspect]
     Active Substance: CANNABIDIOL
     Indication: Focal dyscognitive seizures
  5. EPIDIOLEX [Suspect]
     Active Substance: CANNABIDIOL
     Indication: Partial seizures
  6. EPIDIOLEX [Suspect]
     Active Substance: CANNABIDIOL
     Indication: Gastrostomy

REACTIONS (1)
  - Death [Fatal]
